FAERS Safety Report 4878843-X (Version None)
Quarter: 2006Q1

REPORT INFORMATION
  Report Type: 
  Country: None (occurrence: None)
  Receive Date: 20060112
  Receipt Date: 20060103
  Transmission Date: 20060701
  Serious: Yes (Other)
  Sender: FDA-Public Use
  Company Number: GB-GLAXOSMITHKLINE-B0405338A

PATIENT
  Age: 65 Year
  Sex: Female

DRUGS (5)
  1. PIRITON [Suspect]
     Indication: HYPERSENSITIVITY
     Route: 048
     Dates: start: 20051210, end: 20051211
  2. GLICLAZIDE [Concomitant]
  3. METFORMIN [Concomitant]
  4. RISEDRONATE [Concomitant]
  5. PLAVIX [Concomitant]

REACTIONS (3)
  - PERIORBITAL OEDEMA [None]
  - PRURITUS [None]
  - SWELLING FACE [None]
